FAERS Safety Report 11054471 (Version 1)
Quarter: 2015Q2

REPORT INFORMATION
  Report Type: Spontaneous
  Country: CA (occurrence: CA)
  Receive Date: 20150422
  Receipt Date: 20150422
  Transmission Date: 20150821
  Serious: Yes (Other)
  Sender: FDA-Public Use
  Company Number: CA-ROCHE-1565698

PATIENT
  Age: 44 Year
  Sex: Female

DRUGS (11)
  1. AZATHIOPRINE. [Interacting]
     Active Substance: AZATHIOPRINE
     Route: 065
  2. PLACEBO [Interacting]
     Active Substance: UNSPECIFIED INGREDIENT
     Indication: PRODUCT USED FOR UNKNOWN INDICATION
     Route: 065
  3. FEBUXOSTAT. [Interacting]
     Active Substance: FEBUXOSTAT
     Indication: PRODUCT USED FOR UNKNOWN INDICATION
     Route: 065
  4. ALLOPURINOL. [Interacting]
     Active Substance: ALLOPURINOL
     Indication: PRODUCT USED FOR UNKNOWN INDICATION
     Route: 065
  5. RITUXAN [Suspect]
     Active Substance: RITUXIMAB
     Indication: PRODUCT USED FOR UNKNOWN INDICATION
     Route: 065
  6. MYCOPHENOLATE MOFETIL. [Interacting]
     Active Substance: MYCOPHENOLATE MOFETIL
     Indication: PRODUCT USED FOR UNKNOWN INDICATION
     Route: 058
  7. AZATHIOPRINE. [Interacting]
     Active Substance: AZATHIOPRINE
     Route: 065
  8. METHOTREXATE [Interacting]
     Active Substance: METHOTREXATE
     Indication: PRODUCT USED FOR UNKNOWN INDICATION
     Route: 065
  9. AZATHIOPRINE. [Interacting]
     Active Substance: AZATHIOPRINE
     Indication: PRODUCT USED FOR UNKNOWN INDICATION
     Route: 065
  10. AZATHIOPRINE. [Interacting]
     Active Substance: AZATHIOPRINE
     Route: 065
  11. AZATHIOPRINE. [Interacting]
     Active Substance: AZATHIOPRINE
     Route: 065

REACTIONS (7)
  - Myopathy [Unknown]
  - Pyrexia [Unknown]
  - Drug interaction [Unknown]
  - Drug reaction with eosinophilia and systemic symptoms [Unknown]
  - Eosinophilia [Unknown]
  - Drug ineffective [Unknown]
  - Hepatic mass [Unknown]
